FAERS Safety Report 6056552-1 (Version None)
Quarter: 2009Q1

REPORT INFORMATION
  Report Type: 
  Country: None (occurrence: None)
  Receive Date: 20090126
  Receipt Date: 20090126
  Transmission Date: 20090719
  Serious: Yes (Life-Threatening)
  Sender: FDA-Public Use
  Company Number: None

PATIENT
  Sex: Male
  Weight: 92.9874 kg

DRUGS (2)
  1. AMBIEN CR [Suspect]
     Dosage: ONE 1 A DAY
     Dates: start: 20081105
  2. AMBIEN CR [Suspect]
     Dosage: ONE 1 A DAY
     Dates: start: 20081206

REACTIONS (5)
  - ANXIETY [None]
  - BALANCE DISORDER [None]
  - DIARRHOEA [None]
  - FALL [None]
  - SOMNAMBULISM [None]
